FAERS Safety Report 13439666 (Version 2)
Quarter: 2017Q2

REPORT INFORMATION
  Report Type: Report from Study
  Country: JP (occurrence: JP)
  Receive Date: 20170413
  Receipt Date: 20170509
  Transmission Date: 20170830
  Serious: Yes (Hospitalization, Other)
  Sender: FDA-Public Use
  Company Number: JP-BAXTER-2016BAX059090

PATIENT
  Age: 65 Year
  Sex: Female
  Weight: 44 kg

DRUGS (37)
  1. AMLODIPINE [Concomitant]
     Active Substance: AMLODIPINE BESYLATE
     Indication: PRODUCT USED FOR UNKNOWN INDICATION
     Route: 048
     Dates: start: 20160212
  2. SANDIMMUN [Suspect]
     Active Substance: CYCLOSPORINE
     Indication: DERMATOMYOSITIS
     Route: 041
     Dates: start: 20151211, end: 20160410
  3. PREDNISOLONE. [Suspect]
     Active Substance: PREDNISOLONE
     Dosage: REGIMEN #9
     Route: 048
     Dates: start: 20160525, end: 20160607
  4. PREDNISOLONE. [Suspect]
     Active Substance: PREDNISOLONE
     Dosage: REGIMEN #15
     Route: 048
     Dates: start: 20161031, end: 20161128
  5. EDIROL [Concomitant]
     Active Substance: ELDECALCITOL
     Indication: PRODUCT USED FOR UNKNOWN INDICATION
     Route: 048
     Dates: start: 20151225
  6. XELJANZ [Suspect]
     Active Substance: TOFACITINIB CITRATE
     Dosage: DOSE REDUCED
     Route: 048
     Dates: start: 20160630
  7. PREDNISOLONE. [Suspect]
     Active Substance: PREDNISOLONE
     Dosage: REGIMEN# 3
     Route: 048
     Dates: start: 20151214, end: 20160124
  8. PREDNISOLONE. [Suspect]
     Active Substance: PREDNISOLONE
     Dosage: REGIMEN #8
     Route: 048
     Dates: start: 20160510, end: 20160524
  9. PREDNISOLONE. [Suspect]
     Active Substance: PREDNISOLONE
     Dosage: REGIMEN #12
     Route: 048
     Dates: start: 20160730, end: 20160828
  10. NU-LOTAN [Concomitant]
     Active Substance: LOSARTAN POTASSIUM
     Indication: PRODUCT USED FOR UNKNOWN INDICATION
     Route: 048
     Dates: start: 20160127
  11. DIART [Concomitant]
     Active Substance: AZOSEMIDE
     Indication: PRODUCT USED FOR UNKNOWN INDICATION
     Route: 048
     Dates: start: 20160106
  12. MYSLEE [Concomitant]
     Active Substance: ZOLPIDEM TARTRATE
     Indication: PRODUCT USED FOR UNKNOWN INDICATION
     Route: 048
     Dates: start: 20160218
  13. XELJANZ [Suspect]
     Active Substance: TOFACITINIB CITRATE
     Indication: DERMATOMYOSITIS
     Dosage: DOSE REDUCED
     Route: 048
     Dates: start: 20160526, end: 20160629
  14. PREDNISOLONE. [Suspect]
     Active Substance: PREDNISOLONE
     Dosage: REGIMEN #4; DOSE DECREASED
     Route: 048
     Dates: start: 20160125, end: 20160209
  15. XELJANZ [Suspect]
     Active Substance: TOFACITINIB CITRATE
     Route: 048
     Dates: start: 20160929, end: 20161020
  16. PREDNISOLONE. [Suspect]
     Active Substance: PREDNISOLONE
     Indication: PRODUCT USED FOR UNKNOWN INDICATION
     Dosage: REGIMEN# 1
     Route: 048
     Dates: end: 20151203
  17. PREDNISOLONE. [Suspect]
     Active Substance: PREDNISOLONE
     Dosage: REGIMEN #6
     Route: 048
     Dates: start: 20160225, end: 20160309
  18. PREDNISOLONE. [Suspect]
     Active Substance: PREDNISOLONE
     Dosage: REGIMEN #13
     Route: 048
     Dates: start: 20160829, end: 20161002
  19. VALIXA [Concomitant]
     Active Substance: VALGANCICLOVIR
     Indication: PRODUCT USED FOR UNKNOWN INDICATION
     Route: 048
     Dates: start: 20160428
  20. RHEUMATREX [Concomitant]
     Active Substance: METHOTREXATE SODIUM
     Indication: RHEUMATOID ARTHRITIS
     Route: 048
     Dates: end: 20151211
  21. ETANERCEPT [Concomitant]
     Active Substance: ETANERCEPT
     Indication: RHEUMATOID ARTHRITIS
     Route: 065
     Dates: end: 20151211
  22. ENDOXAN 1G [Suspect]
     Active Substance: CYCLOPHOSPHAMIDE
     Indication: DERMATOMYOSITIS
     Route: 042
     Dates: start: 20151214, end: 20160509
  23. PREDNISOLONE. [Suspect]
     Active Substance: PREDNISOLONE
     Dosage: REGIMEN# 2, THERAPY END DATE: UNREPORTED DATE IN DEC2015
     Route: 048
     Dates: start: 20151204
  24. PREDNISOLONE. [Suspect]
     Active Substance: PREDNISOLONE
     Dosage: REGIMEN #10
     Route: 048
     Dates: start: 20160608, end: 20160621
  25. XELJANZ [Suspect]
     Active Substance: TOFACITINIB CITRATE
     Indication: RHEUMATOID ARTHRITIS
     Route: 048
     Dates: start: 20151217, end: 20160525
  26. NEORAL [Suspect]
     Active Substance: CYCLOSPORINE
     Dosage: AT THE TIME OF ONSET OF HERPES ZOSTER
     Route: 042
  27. SIGMART [Concomitant]
     Active Substance: NICORANDIL
     Indication: PRODUCT USED FOR UNKNOWN INDICATION
     Route: 048
     Dates: start: 20160108
  28. PREDNISOLONE. [Suspect]
     Active Substance: PREDNISOLONE
     Dosage: REGIMEN #16
     Route: 048
     Dates: start: 20161129
  29. NEXIUM [Concomitant]
     Active Substance: ESOMEPRAZOLE MAGNESIUM
     Indication: PRODUCT USED FOR UNKNOWN INDICATION
     Route: 048
     Dates: start: 20151215
  30. MAINTATE [Concomitant]
     Active Substance: BISOPROLOL FUMARATE
     Indication: PRODUCT USED FOR UNKNOWN INDICATION
     Route: 048
     Dates: start: 20160127
  31. HALIZON [Concomitant]
     Active Substance: AMPHOTERICIN B
     Indication: PRODUCT USED FOR UNKNOWN INDICATION
     Route: 048
     Dates: start: 20151220
  32. BAKTAR [Concomitant]
     Active Substance: SULFAMETHOXAZOLE\TRIMETHOPRIM
     Indication: ANTIFUNGAL PROPHYLAXIS
     Route: 065
     Dates: start: 20151225
  33. NEORAL [Suspect]
     Active Substance: CYCLOSPORINE
     Indication: DERMATOMYOSITIS
     Route: 042
     Dates: start: 20160411
  34. PREDNISOLONE. [Suspect]
     Active Substance: PREDNISOLONE
     Dosage: REGIMEN #5
     Route: 048
     Dates: start: 20160210, end: 20160224
  35. PREDNISOLONE. [Suspect]
     Active Substance: PREDNISOLONE
     Dosage: REGIMEN #7
     Route: 048
     Dates: start: 20160310, end: 20160509
  36. PREDNISOLONE. [Suspect]
     Active Substance: PREDNISOLONE
     Dosage: REGIMEN #11
     Route: 048
     Dates: start: 20160622, end: 20160729
  37. PREDNISOLONE. [Suspect]
     Active Substance: PREDNISOLONE
     Dosage: REGIMEN #14
     Route: 048
     Dates: start: 20161003, end: 20161030

REACTIONS (3)
  - Genital herpes zoster [Recovering/Resolving]
  - Type V hyperlipidaemia [Recovering/Resolving]
  - Cytomegalovirus infection [Recovering/Resolving]

NARRATIVE: CASE EVENT DATE: 20160114
